FAERS Safety Report 23184829 (Version 1)
Quarter: 2023Q4

REPORT INFORMATION
  Report Type: Spontaneous
  Country: US (occurrence: US)
  Receive Date: 20231115
  Receipt Date: 20231115
  Transmission Date: 20240110
  Serious: No
  Sender: FDA-Public Use
  Company Number: US-CHIESI-2023CHF00049

PATIENT
  Age: 16 Year
  Sex: Male

DRUGS (7)
  1. BETHKIS [Suspect]
     Active Substance: TOBRAMYCIN
     Indication: Dystonia
     Dosage: 1 DOSAGE FORM, BID
     Route: 055
     Dates: start: 202203
  2. BETHKIS [Suspect]
     Active Substance: TOBRAMYCIN
     Indication: Burkholderia mallei infection
  3. BETHKIS [Suspect]
     Active Substance: TOBRAMYCIN
     Indication: Pseudomonas infection
  4. BETHKIS [Suspect]
     Active Substance: TOBRAMYCIN
     Indication: Burkholderia pseudomallei infection
  5. BETHKIS [Suspect]
     Active Substance: TOBRAMYCIN
     Indication: Lennox-Gastaut syndrome
  6. BETHKIS [Suspect]
     Active Substance: TOBRAMYCIN
     Indication: Off label use
  7. DOJOLVI [Suspect]
     Active Substance: TRIHEPTANOIN
     Indication: Product used for unknown indication
     Dosage: UNK

REACTIONS (2)
  - Blood glucose fluctuation [Unknown]
  - Off label use [Not Recovered/Not Resolved]

NARRATIVE: CASE EVENT DATE: 20220301
